FAERS Safety Report 21598161 (Version 3)
Quarter: 2022Q4

REPORT INFORMATION
  Report Type: Report from Study
  Country: ZA (occurrence: ZA)
  Receive Date: 20221115
  Receipt Date: 20221227
  Transmission Date: 20230112
  Serious: Yes (Death, Other)
  Sender: FDA-Public Use
  Company Number: ZA-PFIZER INC-PV202200101982

PATIENT
  Age: 78 Year
  Sex: Male

DRUGS (1)
  1. LINEZOLID [Suspect]
     Active Substance: LINEZOLID
     Dosage: UNK
     Route: 042
     Dates: start: 20220611

REACTIONS (2)
  - Death [Fatal]
  - Pseudomonas test positive [Unknown]

NARRATIVE: CASE EVENT DATE: 20220701
